FAERS Safety Report 10090122 (Version 1)
Quarter: 2014Q2

REPORT INFORMATION
  Report Type: Spontaneous
  Country: US (occurrence: US)
  Receive Date: 20140421
  Receipt Date: 20140421
  Transmission Date: 20141212
  Serious: Yes (Other)
  Sender: FDA-Public Use
  Company Number: US-PFIZER INC-2014110550

PATIENT
  Sex: Female

DRUGS (2)
  1. EFFEXOR XR [Suspect]
     Dosage: UNK
  2. KEFLEX [Suspect]
     Indication: LOCALISED INFECTION
     Dosage: UNK

REACTIONS (2)
  - Localised infection [Unknown]
  - Diarrhoea [Recovered/Resolved]
